FAERS Safety Report 4953867-2 (Version None)
Quarter: 2006Q1

REPORT INFORMATION
  Report Type: 
  Country: None (occurrence: None)
  Receive Date: 20060321
  Receipt Date: 20060308
  Transmission Date: 20060701
  Serious: Yes (Death, Other)
  Sender: FDA-Public Use
  Company Number: 2006-DE-01272GD

PATIENT
  Age: 4 Month
  Sex: Male

DRUGS (2)
  1. PSEUDOEPHEDRINE HCL [Suspect]
  2. EPHEDRINE SUL CAP [Suspect]

REACTIONS (3)
  - DRUG SCREEN POSITIVE [None]
  - LABORATORY TEST INTERFERENCE [None]
  - LOSS OF CONSCIOUSNESS [None]
